FAERS Safety Report 7016609-5 (Version None)
Quarter: 2010Q3

REPORT INFORMATION
  Report Type: 
  Country: None (occurrence: None)
  Receive Date: 20100927
  Receipt Date: 20100915
  Transmission Date: 20110219
  Serious: Yes (Other)
  Sender: FDA-Public Use
  Company Number: B0623520A

PATIENT
  Sex: Female
  Weight: 58 kg

DRUGS (2)
  1. LAMBIPOL [Suspect]
     Dosage: 200MG PER DAY
     Route: 048
     Dates: start: 20061215
  2. XANAX [Suspect]
     Indication: INSOMNIA
     Route: 048
     Dates: start: 20091101

REACTIONS (4)
  - ABORTION SPONTANEOUS [None]
  - DRUG EXPOSURE DURING PREGNANCY [None]
  - GENITAL HAEMORRHAGE [None]
  - UNINTENDED PREGNANCY [None]
